FAERS Safety Report 5626021-9 (Version None)
Quarter: 2008Q1

REPORT INFORMATION
  Report Type: 
  Country: None (occurrence: None)
  Receive Date: 20080214
  Receipt Date: 20080211
  Transmission Date: 20080703
  Serious: Yes (Death, Life-Threatening, Hospitalization)
  Sender: FDA-Public Use
  Company Number: PHRM2008FR00796

PATIENT
  Age: 86 Year
  Sex: Female

DRUGS (7)
  1. HYDROCORTISONE [Suspect]
     Route: 048
  2. EUPRESSYL [Suspect]
     Route: 048
     Dates: end: 20060614
  3. SPIRONOLACTONE [Suspect]
     Route: 048
     Dates: end: 20060614
  4. TOPALGIC ^HOUDE^ [Suspect]
     Route: 048
     Dates: end: 20060614
  5. STILNOX                                 /FRA/ [Suspect]
     Route: 048
     Dates: end: 20060614
  6. XANAX [Suspect]
     Route: 048
     Dates: end: 20060614
  7. VOLTAREN [Suspect]
     Indication: ARTHRALGIA
     Dosage: UNK, UNK
     Route: 048
     Dates: start: 20060605, end: 20060614

REACTIONS (13)
  - ARTHRALGIA [None]
  - BLOOD CREATININE INCREASED [None]
  - BLOOD UREA INCREASED [None]
  - DEHYDRATION [None]
  - FLUID REPLACEMENT [None]
  - HAEMATURIA [None]
  - HYPERKALAEMIA [None]
  - ORAL CANDIDIASIS [None]
  - RENAL ATROPHY [None]
  - RENAL FAILURE ACUTE [None]
  - SUDDEN DEATH [None]
  - TONGUE DRY [None]
  - WHITE BLOOD CELLS URINE POSITIVE [None]
